FAERS Safety Report 25475320 (Version 2)
Quarter: 2025Q3

REPORT INFORMATION
  Report Type: Spontaneous
  Country: AR (occurrence: AR)
  Receive Date: 20250624
  Receipt Date: 20250714
  Transmission Date: 20251020
  Serious: Yes (Other)
  Sender: BIOMARIN
  Company Number: AR-BIOMARINAP-AR-2025-166717

PATIENT
  Age: 10 Year
  Sex: Male
  Weight: 16 kg

DRUGS (1)
  1. VIMIZIM [Suspect]
     Active Substance: ELOSULFASE ALFA
     Indication: Mucopolysaccharidosis IV
     Dosage: UNK, QW
     Dates: start: 20180824

REACTIONS (4)
  - Spinal cord compression [Not Recovered/Not Resolved]
  - Spinal instability [Unknown]
  - Odontoid process hypoplasia [Unknown]
  - Joint laxity [Unknown]
